FAERS Safety Report 8325207-2 (Version None)
Quarter: 2012Q2

REPORT INFORMATION
  Report Type: 
  Country: None (occurrence: None)
  Receive Date: 20120501
  Receipt Date: 20120427
  Transmission Date: 20120825
  Serious: Yes (Life-Threatening)
  Sender: FDA-Public Use
  Company Number: FR-ASTRAZENECA-2011SE45912

PATIENT
  Age: 47 Year
  Sex: Male
  Weight: 97 kg

DRUGS (7)
  1. ACETAMINOPHEN [Concomitant]
  2. ACETAMINOPHEN [Concomitant]
  3. PERINDOPRIL ERBUMINE [Concomitant]
  4. ALLOPURINOL [Concomitant]
  5. BISOPROLOL FUMARATE [Concomitant]
  6. PANTOPRAZOLE [Concomitant]
  7. CRESTOR [Suspect]
     Indication: HYPERCHOLESTEROLAEMIA
     Route: 048
     Dates: start: 20080527, end: 20110614

REACTIONS (3)
  - RENAL FAILURE ACUTE [None]
  - HEPATIC CIRRHOSIS [None]
  - RHABDOMYOLYSIS [None]
